FAERS Safety Report 9334400 (Version 1)
Quarter: 2013Q2

REPORT INFORMATION
  Report Type: Spontaneous
  Country: US (occurrence: US)
  Receive Date: 20130606
  Receipt Date: 20130606
  Transmission Date: 20140414
  Serious: No
  Sender: FDA-Public Use
  Company Number: US-AMGEN-USASP2013014479

PATIENT
  Age: 61 Year
  Sex: Female

DRUGS (4)
  1. PROLIA [Suspect]
     Indication: OSTEOPOROSIS POSTMENOPAUSAL
     Dosage: UNK
     Dates: start: 20130201
  2. WELLBUTRIN XL [Concomitant]
  3. PRILOSEC                           /00661201/ [Concomitant]
  4. SINGULAIR [Concomitant]

REACTIONS (17)
  - Nausea [Recovering/Resolving]
  - Vomiting [Recovered/Resolved]
  - Diarrhoea [Unknown]
  - Headache [Unknown]
  - Influenza [Unknown]
  - Vitamin D decreased [Unknown]
  - Abdominal distension [Unknown]
  - Muscle spasms [Unknown]
  - Immune system disorder [Unknown]
  - Secretion discharge [Unknown]
  - Abdominal pain [Unknown]
  - Abdominal pain upper [Unknown]
  - Myalgia [Unknown]
  - Flatulence [Unknown]
  - Fatigue [Unknown]
  - Arthralgia [Unknown]
  - Sciatica [Unknown]
